FAERS Safety Report 16719281 (Version 1)
Quarter: 2019Q3

REPORT INFORMATION
  Report Type: Spontaneous
  Country: NL (occurrence: NL)
  Receive Date: 20190820
  Receipt Date: 20190820
  Transmission Date: 20191005
  Serious: Yes (Death, Hospitalization, Other)
  Sender: FDA-Public Use
  Company Number: NL-AUROBINDO-AUR-APL-2019-054264

PATIENT

DRUGS (2)
  1. ETOPOSIDE. [Concomitant]
     Active Substance: ETOPOSIDE
     Indication: PRODUCT USED FOR UNKNOWN INDICATION
     Dosage: UNK
     Route: 065
  2. LEVETIRACETAM 250 MG FILM-COATED TABLETS [Suspect]
     Active Substance: LEVETIRACETAM
     Indication: EPILEPSY
     Dosage: 750 MILLIGRAM, TWO TIMES A DAY, 2X PER DAG 3 STUKS
     Route: 048
     Dates: start: 20181231, end: 20190314

REACTIONS (9)
  - Neutropenia [Fatal]
  - Haemophagocytic lymphohistiocytosis [Fatal]
  - Pericarditis [Fatal]
  - Pyrexia [Fatal]
  - Myocarditis [Fatal]
  - Rash [Not Recovered/Not Resolved]
  - Sepsis [Fatal]
  - Hepatic failure [Fatal]
  - Renal failure [Fatal]

NARRATIVE: CASE EVENT DATE: 20190314
